FAERS Safety Report 6654820-3 (Version None)
Quarter: 2010Q1

REPORT INFORMATION
  Report Type: 
  Country: None (occurrence: None)
  Receive Date: 20100329
  Receipt Date: 20100318
  Transmission Date: 20100710
  Serious: Yes (Other)
  Sender: FDA-Public Use
  Company Number: IL-BIOGENIDEC-2010BI009264

PATIENT
  Age: 47 Year
  Sex: Female

DRUGS (2)
  1. TYSABRI [Suspect]
     Indication: MULTIPLE SCLEROSIS
     Dates: start: 20080101, end: 20100101
  2. TRITRACE [Concomitant]
     Indication: HYPERTENSION
     Route: 048

REACTIONS (1)
  - BLADDER TRANSITIONAL CELL CARCINOMA [None]
